FAERS Safety Report 5887074-6 (Version None)
Quarter: 2008Q3

REPORT INFORMATION
  Report Type: 
  Country: None (occurrence: None)
  Receive Date: 20080915
  Receipt Date: 20080901
  Transmission Date: 20090109
  Serious: Yes (Death, Hospitalization)
  Sender: FDA-Public Use
  Company Number: 1000000832

PATIENT
  Age: 87 Year
  Sex: Female

DRUGS (7)
  1. CITALOPRAM HYDROBROMIDE [Suspect]
     Indication: DEPRESSION
     Dosage: 40 MG (20 MG,2 IN 1 D), INTRAVENOUS
     Route: 042
     Dates: start: 20080305, end: 20080308
  2. CITALOPRAM HYDROBROMIDE [Suspect]
     Indication: DEPRESSION
     Dosage: 20 MG (20 MG,1 IN 1 D), INTRAVENOUS
     Route: 042
     Dates: start: 20080225, end: 20080304
  3. TRIFLUCAN [Suspect]
     Indication: ORAL FUNGAL INFECTION
     Dosage: ORAL
     Route: 048
     Dates: start: 20080301, end: 20080310
  4. ZYPREXA [Suspect]
     Indication: DEPRESSION
     Dosage: 5 MG (5 MG,1 IN 1 D),ORAL
     Route: 048
     Dates: start: 20080304, end: 20080308
  5. RISPERDAL [Suspect]
     Indication: DEPRESSION
     Dosage: 1-2 DF DAILY,ORAL
     Route: 048
     Dates: start: 20080225, end: 20080305
  6. ROCEPHIN [Suspect]
     Indication: URINARY TRACT INFECTION
     Dosage: 1 GM (1 GM,1 IN 1 D),INTRAVENOUS (NOT OTHERWISE SPECIFIED)
     Route: 042
     Dates: start: 20080225, end: 20080307
  7. LOVENOX [Suspect]
     Indication: ARRHYTHMIA
     Dosage: 8000 IU (4000 IU,2 IN 1 D), SUBCUTANEOUS
     Route: 058
     Dates: start: 20080226, end: 20080310

REACTIONS (3)
  - HEPATITIS TOXIC [None]
  - HYPOTHERMIA [None]
  - SEPTIC SHOCK [None]
